FAERS Safety Report 18138421 (Version 1)
Quarter: 2020Q3

REPORT INFORMATION
  Report Type: Spontaneous
  Country: CA (occurrence: CA)
  Receive Date: 20200812
  Receipt Date: 20200812
  Transmission Date: 20201103
  Serious: Yes (Death)
  Sender: FDA-Public Use
  Company Number: CA-ROCHE-2657676

PATIENT
  Sex: Female

DRUGS (21)
  1. IMOVANE [Concomitant]
     Active Substance: ZOPICLONE
  2. PANTOPRAZOLE [Concomitant]
     Active Substance: PANTOPRAZOLE
     Route: 048
  3. SALBUTAMOL [Concomitant]
     Active Substance: ALBUTEROL
  4. RITUXAN [Suspect]
     Active Substance: RITUXIMAB
     Indication: NON-HODGKIN^S LYMPHOMA STAGE III
     Route: 065
  5. BISACODYL. [Concomitant]
     Active Substance: BISACODYL
  6. LACTULOSE. [Concomitant]
     Active Substance: LACTULOSE
  7. PREDNISOLONE. [Suspect]
     Active Substance: PREDNISOLONE
     Indication: NON-HODGKIN^S LYMPHOMA STAGE III
     Route: 065
  8. OXYCONTIN [Concomitant]
     Active Substance: OXYCODONE HYDROCHLORIDE
  9. OXYGEN. [Concomitant]
     Active Substance: OXYGEN
  10. SERTRALINE [Concomitant]
     Active Substance: SERTRALINE HYDROCHLORIDE
  11. ZOFRAN [Concomitant]
     Active Substance: ONDANSETRON HYDROCHLORIDE
  12. ESBRIET [Suspect]
     Active Substance: PIRFENIDONE
     Indication: IDIOPATHIC PULMONARY FIBROSIS
     Route: 048
  13. PANTOPRAZOLE [Concomitant]
     Active Substance: PANTOPRAZOLE
     Route: 048
  14. CYCLOPHOSPHAMIDE. [Suspect]
     Active Substance: CYCLOPHOSPHAMIDE
     Indication: NON-HODGKIN^S LYMPHOMA STAGE III
     Route: 065
  15. DOCUSATE SODIUM. [Concomitant]
     Active Substance: DOCUSATE SODIUM
  16. NYSTATIN. [Concomitant]
     Active Substance: NYSTATIN
  17. ONDANSETRON [Concomitant]
     Active Substance: ONDANSETRON
  18. ZOPICLONE [Concomitant]
     Active Substance: ZOPICLONE
  19. LORAZEPAM. [Concomitant]
     Active Substance: LORAZEPAM
  20. STEMETIL [PROCHLORPERAZINE] [Concomitant]
     Active Substance: PROCHLORPERAZINE
  21. VINCRISTINE SULFATE. [Suspect]
     Active Substance: VINCRISTINE SULFATE
     Indication: NON-HODGKIN^S LYMPHOMA STAGE III
     Route: 065

REACTIONS (1)
  - Death [Fatal]
